FAERS Safety Report 14381064 (Version 1)
Quarter: 2018Q1

REPORT INFORMATION
  Report Type: Spontaneous
  Country: US (occurrence: US)
  Receive Date: 20180111
  Receipt Date: 20180111
  Transmission Date: 20180509
  Serious: Yes (Death)
  Sender: FDA-Public Use
  Company Number: None

PATIENT
  Age: 80 Year
  Sex: Female

DRUGS (20)
  1. PROPRANOLOL [Concomitant]
     Active Substance: PROPRANOLOL HYDROCHLORIDE
  2. NYSTOP [Concomitant]
     Active Substance: NYSTATIN
  3. CITALOPRAM [Concomitant]
     Active Substance: CITALOPRAM HYDROBROMIDE
  4. HALOPERIDOL. [Concomitant]
     Active Substance: HALOPERIDOL
  5. LORAZEPAM. [Concomitant]
     Active Substance: LORAZEPAM
  6. ALBUTEROL. [Concomitant]
     Active Substance: ALBUTEROL
  7. TOBRAMYCIN. [Concomitant]
     Active Substance: TOBRAMYCIN
  8. MORPHINE SUL [Concomitant]
     Active Substance: MORPHINE SULFATE
  9. ALPRAZOLAM. [Concomitant]
     Active Substance: ALPRAZOLAM
  10. METHADONE [Concomitant]
     Active Substance: METHADONE HYDROCHLORIDE
  11. CYANOCOBALAMIN. [Concomitant]
     Active Substance: CYANOCOBALAMIN
  12. ESTRADIOL. [Concomitant]
     Active Substance: ESTRADIOL
  13. HYOSCYAMINE. [Concomitant]
     Active Substance: HYOSCYAMINE
  14. METHOCARBAM [Concomitant]
  15. LIDOCAINE. [Concomitant]
     Active Substance: LIDOCAINE
  16. LATANOPROST. [Concomitant]
     Active Substance: LATANOPROST
  17. TOBRAMYCIN. [Concomitant]
     Active Substance: TOBRAMYCIN
  18. PULMOZYME [Suspect]
     Active Substance: DORNASE ALFA
     Indication: BRONCHIECTASIS
     Route: 055
     Dates: end: 20180109
  19. HYDROCOD/APAP [Concomitant]
  20. ACETYLCYST [Concomitant]

REACTIONS (1)
  - Death [None]

NARRATIVE: CASE EVENT DATE: 20180109
